FAERS Safety Report 7198158-7 (Version None)
Quarter: 2010Q4

REPORT INFORMATION
  Report Type: 
  Country: None (occurrence: None)
  Receive Date: 20101227
  Receipt Date: 20101213
  Transmission Date: 20110411
  Serious: Yes (Hospitalization)
  Sender: FDA-Public Use
  Company Number: PHHY2010DE69018

PATIENT
  Sex: Male
  Weight: 87 kg

DRUGS (2)
  1. RASILEZ [Suspect]
     Indication: HYPERTENSION
     Dosage: 150 MG/D
     Dates: start: 20090101, end: 20101005
  2. MICARDIS [Suspect]
     Dosage: UNK
     Dates: end: 20101023

REACTIONS (4)
  - BLOOD CREATININE INCREASED [None]
  - BLOOD PRESSURE INCREASED [None]
  - RENAL FAILURE ACUTE [None]
  - RENAL IMPAIRMENT [None]
